FAERS Safety Report 13579784 (Version 1)
Quarter: 2017Q2

REPORT INFORMATION
  Report Type: Spontaneous
  Country: US (occurrence: US)
  Receive Date: 20170525
  Receipt Date: 20170525
  Transmission Date: 20170830
  Serious: Yes (Other)
  Sender: FDA-Public Use
  Company Number: US-CLINIGEN GROUP PLC/ CLINIGEN HEALTHCARE LTD-E2B_00004782

PATIENT
  Sex: Male
  Weight: 63.2 kg

DRUGS (4)
  1. FOSCAVIR [Suspect]
     Active Substance: FOSCARNET SODIUM
     Indication: CYTOMEGALOVIRUS CHORIORETINITIS
     Dosage: DOSE: 5670 MG TOTAL DAILY DOSE: 5670 MG
     Route: 042
  2. FOSCAVIR [Suspect]
     Active Substance: FOSCARNET SODIUM
     Dosage: DOSE: 5670 MG TOTAL DAILY DOSE: 5670 MG
     Route: 042
     Dates: start: 19940104
  3. GANCICLOVIR. [Concomitant]
     Active Substance: GANCICLOVIR
     Indication: CYTOMEGALOVIRUS CHORIORETINITIS
     Dosage: TOTAL DAILY DOSE: 350 MG
     Route: 065
     Dates: start: 19931001
  4. AMIKACIN [Concomitant]
     Active Substance: AMIKACIN
     Dosage: TOTAL DAILY DOSE: 500 MG
     Route: 042

REACTIONS (2)
  - Neutropenia [Not Recovered/Not Resolved]
  - Skin ulcer [Not Recovered/Not Resolved]

NARRATIVE: CASE EVENT DATE: 19940201
